FAERS Safety Report 20600293 (Version 1)
Quarter: 2022Q1

REPORT INFORMATION
  Report Type: Spontaneous
  Country: JP (occurrence: JP)
  Receive Date: 20220316
  Receipt Date: 20220316
  Transmission Date: 20220423
  Serious: Yes (Other)
  Sender: FDA-Public Use
  Company Number: JP-BRISTOL-MYERS SQUIBB COMPANY-BMS-2022-031119

PATIENT
  Age: 9 Decade
  Sex: Male

DRUGS (34)
  1. EMPLICITI [Suspect]
     Active Substance: ELOTUZUMAB
     Indication: Plasma cell myeloma
     Dosage: UNK
     Route: 065
     Dates: start: 20180709, end: 20200109
  2. LENALIDOMIDE [Suspect]
     Active Substance: LENALIDOMIDE
     Indication: Plasma cell myeloma
     Dosage: 10 MILLIGRAM
     Route: 065
     Dates: start: 20180709
  3. LENALIDOMIDE [Suspect]
     Active Substance: LENALIDOMIDE
     Dosage: 5 MILLIGRAM
     Route: 065
     Dates: start: 20200109, end: 20200109
  4. LENALIDOMIDE [Suspect]
     Active Substance: LENALIDOMIDE
     Dosage: 5 UNK
     Route: 065
     Dates: start: 20200806, end: 20200806
  5. POMALIDOMIDE [Suspect]
     Active Substance: POMALIDOMIDE
     Indication: Plasma cell myeloma
     Dosage: 3 MILLIGRAM, ONE TIME DOSE
     Route: 065
     Dates: start: 20210531, end: 20210531
  6. POMALIDOMIDE [Suspect]
     Active Substance: POMALIDOMIDE
     Dosage: 3 MILLIGRAM, ONE TIME DOSE
     Route: 065
     Dates: start: 20210702, end: 20210702
  7. POMALIDOMIDE [Suspect]
     Active Substance: POMALIDOMIDE
     Dosage: 3 MILLIGRAM, ONE TIME DOSE
     Route: 065
     Dates: start: 20210730, end: 20210730
  8. POMALIDOMIDE [Suspect]
     Active Substance: POMALIDOMIDE
     Dosage: 3 MILLIGRAM, ONE TIME DOSE
     Route: 065
     Dates: start: 20210827, end: 20210827
  9. POMALIDOMIDE [Suspect]
     Active Substance: POMALIDOMIDE
     Dosage: 2 MILLIGRAM, ONE TIME DOSE
     Route: 065
     Dates: start: 20211029, end: 20211029
  10. POMALIDOMIDE [Suspect]
     Active Substance: POMALIDOMIDE
     Dosage: UNK UNK, ONE TIME DOSE
     Route: 065
     Dates: start: 20211126, end: 20211126
  11. POMALIDOMIDE [Suspect]
     Active Substance: POMALIDOMIDE
     Dosage: UNK UNK, ONE TIME DOSE
     Route: 065
     Dates: start: 20211224, end: 20211224
  12. POMALIDOMIDE [Suspect]
     Active Substance: POMALIDOMIDE
     Dosage: UNK UNK, ONE TIME DOSE
     Route: 065
     Dates: start: 20220204, end: 20220204
  13. DEXAMETHASONE [Suspect]
     Active Substance: DEXAMETHASONE
     Indication: Plasma cell myeloma
     Dosage: UNK
     Route: 065
     Dates: start: 20180709, end: 20200109
  14. DEXAMETHASONE [Suspect]
     Active Substance: DEXAMETHASONE
     Dosage: 12 UNK
     Route: 065
     Dates: start: 20200806, end: 20210417
  15. DEXAMETHASONE [Suspect]
     Active Substance: DEXAMETHASONE
     Dosage: 20 MILLIGRAM, ONE TIME DOSE
     Route: 065
     Dates: start: 20210531, end: 20210531
  16. DEXAMETHASONE [Suspect]
     Active Substance: DEXAMETHASONE
     Dosage: 20 MILLIGRAM, ONE TIME DOSE
     Route: 065
     Dates: start: 20210702, end: 20210702
  17. DEXAMETHASONE [Suspect]
     Active Substance: DEXAMETHASONE
     Dosage: 20 MILLIGRAM, ONE TIME DOSE
     Route: 065
     Dates: start: 20210730, end: 20210730
  18. DEXAMETHASONE [Suspect]
     Active Substance: DEXAMETHASONE
     Dosage: 20 MILLIGRAM, ONE TIME DOSE
     Route: 065
     Dates: start: 20210827, end: 20210827
  19. DEXAMETHASONE [Suspect]
     Active Substance: DEXAMETHASONE
     Dosage: UNK UNK, ONE TIME DOSE
     Route: 065
     Dates: start: 20211029, end: 20211029
  20. DEXAMETHASONE [Suspect]
     Active Substance: DEXAMETHASONE
     Dosage: UNK UNK, ONE TIME DOSE
     Route: 065
     Dates: start: 20211126, end: 20211126
  21. DEXAMETHASONE [Suspect]
     Active Substance: DEXAMETHASONE
     Dosage: UNK UNK, ONE TIME DOSE
     Route: 065
     Dates: start: 20211224, end: 20211224
  22. DEXAMETHASONE [Suspect]
     Active Substance: DEXAMETHASONE
     Dosage: UNK UNK, ONE TIME DOSE
     Route: 065
     Dates: start: 20220204, end: 20220204
  23. IXAZOMIB CITRATE [Suspect]
     Active Substance: IXAZOMIB CITRATE
     Indication: Plasma cell myeloma
     Dosage: 3 UNK
     Route: 065
     Dates: start: 20200806, end: 20210417
  24. ISATUXIMAB [Suspect]
     Active Substance: ISATUXIMAB
     Indication: Plasma cell myeloma
     Dosage: UNK UNK, ONE TIME DOSE
     Route: 065
     Dates: start: 20210531, end: 20210531
  25. ISATUXIMAB [Suspect]
     Active Substance: ISATUXIMAB
     Dosage: UNK UNK, ONE TIME DOSE
     Route: 065
     Dates: start: 20210702, end: 20210702
  26. ISATUXIMAB [Suspect]
     Active Substance: ISATUXIMAB
     Dosage: UNK UNK, ONE TIME DOSE
     Route: 065
     Dates: start: 20210730, end: 20210730
  27. ISATUXIMAB [Suspect]
     Active Substance: ISATUXIMAB
     Dosage: UNK UNK, ONE TIME DOSE
     Route: 065
     Dates: start: 20210827, end: 20210827
  28. ISATUXIMAB [Suspect]
     Active Substance: ISATUXIMAB
     Dosage: UNK UNK, ONE TIME DOSE
     Route: 065
     Dates: start: 20211029, end: 20211029
  29. ISATUXIMAB [Suspect]
     Active Substance: ISATUXIMAB
     Dosage: UNK UNK, ONE TIME DOSE
     Route: 065
     Dates: start: 20211126, end: 20211126
  30. ISATUXIMAB [Suspect]
     Active Substance: ISATUXIMAB
     Dosage: UNK UNK, ONE TIME DOSE
     Route: 065
     Dates: start: 20211224, end: 20211224
  31. ISATUXIMAB [Suspect]
     Active Substance: ISATUXIMAB
     Dosage: UNK UNK, ONE TIME DOSE
     Route: 065
     Dates: start: 20220204, end: 20220204
  32. DARATUMUMAB [Concomitant]
     Active Substance: DARATUMUMAB
     Indication: Plasma cell myeloma
     Dosage: UNK
     Route: 065
     Dates: start: 20200219, end: 20200716
  33. BORTEZOMIB [Concomitant]
     Active Substance: BORTEZOMIB
     Indication: Plasma cell myeloma
     Dosage: UNK
     Route: 065
     Dates: start: 20200219, end: 20200716
  34. DEXAMETHASONE [Concomitant]
     Active Substance: DEXAMETHASONE
     Indication: Plasma cell myeloma
     Dosage: UNK
     Route: 065
     Dates: start: 20200219, end: 20200716

REACTIONS (3)
  - Rash [Recovered/Resolved]
  - Arthralgia [Unknown]
  - Fatigue [Unknown]

NARRATIVE: CASE EVENT DATE: 20200101
